FAERS Safety Report 6979046-5 (Version None)
Quarter: 2010Q3

REPORT INFORMATION
  Report Type: 
  Country: None (occurrence: None)
  Receive Date: 20100913
  Receipt Date: 20100907
  Transmission Date: 20110219
  Serious: Yes (Hospitalization)
  Sender: FDA-Public Use
  Company Number: IT-JNJCH-2010020352

PATIENT
  Sex: Male

DRUGS (3)
  1. REACTINE [Suspect]
     Indication: ARTHROPOD STING
     Dosage: TEXT:ONE TABLET ONCE
     Route: 048
     Dates: start: 20100831, end: 20100831
  2. BISOPROLOL FUMARATE [Concomitant]
     Indication: HYPERTENSION
     Dosage: TEXT:UNKNOWN
     Route: 048
  3. COAPROVEL [Concomitant]
     Indication: PRODUCT USED FOR UNKNOWN INDICATION
     Dosage: TEXT:UNKNOWN
     Route: 065

REACTIONS (3)
  - HYPERTENSIVE CRISIS [None]
  - OFF LABEL USE [None]
  - TACHYCARDIA [None]
